FAERS Safety Report 11677411 (Version 2)
Quarter: 2015Q4

REPORT INFORMATION
  Report Type: Spontaneous
  Country: AU (occurrence: AU)
  Receive Date: 20151028
  Receipt Date: 20151214
  Transmission Date: 20160304
  Serious: Yes (Hospitalization)
  Sender: FDA-Public Use
  Company Number: AU-SA-2015SA166240

PATIENT
  Sex: Male

DRUGS (2)
  1. DIGOXIN. [Suspect]
     Active Substance: DIGOXIN
     Route: 065
  2. LASIX [Suspect]
     Active Substance: FUROSEMIDE
     Route: 065

REACTIONS (6)
  - Wrong drug administered [Unknown]
  - Diarrhoea [Unknown]
  - Renal impairment [Unknown]
  - Toxicity to various agents [Unknown]
  - Vomiting [Unknown]
  - Dialysis [Unknown]

NARRATIVE: CASE EVENT DATE: 20120606
